FAERS Safety Report 7289850-4 (Version None)
Quarter: 2011Q1

REPORT INFORMATION
  Report Type: 
  Country: None (occurrence: None)
  Receive Date: 20110214
  Receipt Date: 20110201
  Transmission Date: 20110831
  Serious: No
  Sender: FDA-Public Use
  Company Number: US-BIOGENIDEC-2011BI004708

PATIENT
  Sex: Male

DRUGS (2)
  1. AVONEX [Suspect]
     Indication: MULTIPLE SCLEROSIS
     Route: 030
     Dates: start: 20100818
  2. AVONEX [Suspect]
     Route: 030
     Dates: start: 20011019

REACTIONS (8)
  - DEPRESSION [None]
  - ASTHENIA [None]
  - INJECTION SITE PAIN [None]
  - FALL [None]
  - HYPERTENSION [None]
  - MULTIPLE SCLEROSIS [None]
  - INSOMNIA [None]
  - MEMORY IMPAIRMENT [None]
